FAERS Safety Report 23650591 (Version 4)
Quarter: 2024Q2

REPORT INFORMATION
  Report Type: Spontaneous
  Country: AT (occurrence: AT)
  Receive Date: 20240320
  Receipt Date: 20240507
  Transmission Date: 20240716
  Serious: Yes (Hospitalization)
  Sender: FDA-Public Use
  Company Number: AT-SA-SAC20240315000780

PATIENT
  Age: 15 Year
  Sex: Female
  Weight: 29.6 kg

DRUGS (3)
  1. AVALGLUCOSIDASE ALFA [Suspect]
     Active Substance: AVALGLUCOSIDASE ALFA
     Indication: Glycogen storage disease type II
     Dosage: 1200 MG, QOW
     Route: 042
     Dates: start: 202211
  2. AVALGLUCOSIDASE ALFA [Suspect]
     Active Substance: AVALGLUCOSIDASE ALFA
     Dosage: 900 MG
     Route: 042
     Dates: start: 20240418
  3. DIPHENHYDRAMINE HYDROCHLORIDE [Concomitant]
     Active Substance: DIPHENHYDRAMINE HYDROCHLORIDE
     Indication: Premedication
     Dosage: UNK

REACTIONS (12)
  - Febrile infection [Recovered/Resolved]
  - Respiratory tract infection [Recovered/Resolved]
  - Productive cough [Recovered/Resolved]
  - Pyrexia [Recovered/Resolved]
  - Retching [Unknown]
  - Salivary hypersecretion [Unknown]
  - Nausea [Unknown]
  - Headache [Unknown]
  - Pain in extremity [Unknown]
  - Abdominal pain upper [Unknown]
  - Vomiting [Unknown]
  - Dizziness [Unknown]

NARRATIVE: CASE EVENT DATE: 20240227
